FAERS Safety Report 13461340 (Version 1)
Quarter: 2017Q2

REPORT INFORMATION
  Report Type: Spontaneous
  Country: US (occurrence: US)
  Receive Date: 20170418
  Receipt Date: 20170418
  Transmission Date: 20170830
  Serious: Yes (Life-Threatening, Hospitalization)
  Sender: FDA-Public Use
  Company Number: None

PATIENT
  Age: 66 Year
  Sex: Male
  Weight: 139 kg

DRUGS (4)
  1. APIXABAN 5 MG [Suspect]
     Active Substance: APIXABAN
     Indication: THROMBOSIS PROPHYLAXIS
     Route: 048
     Dates: start: 20170103, end: 20170417
  2. DILTIAZEM ER [Concomitant]
     Active Substance: DILTIAZEM
  3. QVAR (BECLOMETHASONE) [Concomitant]
  4. ELIQUIS [Concomitant]
     Active Substance: APIXABAN

REACTIONS (1)
  - Ischaemic cerebral infarction [None]

NARRATIVE: CASE EVENT DATE: 20170417
